FAERS Safety Report 8213036-X (Version None)
Quarter: 2012Q1

REPORT INFORMATION
  Report Type: 
  Country: None (occurrence: None)
  Receive Date: 20120315
  Receipt Date: 20120307
  Transmission Date: 20120608
  Serious: Yes (Hospitalization)
  Sender: FDA-Public Use
  Company Number: GB-JNJFOC-20101206026

PATIENT
  Sex: Male

DRUGS (26)
  1. AMLODIPINE [Concomitant]
     Indication: HYPERTENSION
     Route: 048
     Dates: start: 20020201
  2. BENDROFLUMETHIAZIDE [Concomitant]
     Indication: FLUID RETENTION
     Route: 048
     Dates: start: 20040201
  3. CARBOCISTEINE [Concomitant]
     Indication: COUGH
     Dates: start: 20101206
  4. MORPHINE SULFATE [Concomitant]
     Indication: PRODUCT USED FOR UNKNOWN INDICATION
     Route: 048
     Dates: start: 20101119
  5. ABIRATERONE ACETATE [Suspect]
     Route: 048
  6. ABIRATERONE ACETATE [Suspect]
     Indication: PROSTATE CANCER METASTATIC
     Route: 048
     Dates: start: 20100309
  7. ASPIRIN [Concomitant]
     Route: 048
     Dates: start: 20050401
  8. FLUTICASONE PROPIONATE/SALMETEROL [Concomitant]
     Indication: PRODUCT USED FOR UNKNOWN INDICATION
     Route: 055
  9. GABAPENTIN [Concomitant]
     Indication: PRODUCT USED FOR UNKNOWN INDICATION
     Route: 048
     Dates: start: 20101119
  10. PREDNISOLONE [Suspect]
     Indication: PROSTATE CANCER METASTATIC
     Route: 048
     Dates: start: 20100309
  11. PREDNISOLONE [Suspect]
     Route: 048
     Dates: start: 20101217, end: 20101218
  12. ASPIRIN [Concomitant]
     Indication: THROMBOSIS PROPHYLAXIS
     Route: 048
     Dates: start: 20100602
  13. TIOTROPIUM [Concomitant]
     Indication: PRODUCT USED FOR UNKNOWN INDICATION
     Route: 055
  14. SALBUTAMOL [Concomitant]
     Indication: PRODUCT USED FOR UNKNOWN INDICATION
     Route: 055
  15. DICLOFENAC SODIUM [Concomitant]
     Indication: PRODUCT USED FOR UNKNOWN INDICATION
     Route: 048
     Dates: start: 20101119
  16. RAMIPRIL [Concomitant]
     Indication: HYPERTENSION
     Route: 048
     Dates: start: 20031201
  17. PREDNISOLONE [Suspect]
     Route: 048
     Dates: start: 20101206
  18. PREDNISOLONE [Suspect]
     Route: 048
     Dates: start: 20101213, end: 20101214
  19. ZOLADEX [Concomitant]
     Indication: HORMONE THERAPY
     Route: 058
     Dates: start: 20060607
  20. ZOLADEX [Concomitant]
     Route: 058
     Dates: start: 20100309
  21. ALLOPURINOL [Concomitant]
     Indication: BLOOD UREA INCREASED
     Route: 048
     Dates: start: 20100308
  22. GOSERELIN [Concomitant]
     Indication: PRODUCT USED FOR UNKNOWN INDICATION
     Route: 065
     Dates: start: 20101008
  23. PREDNISOLONE [Suspect]
     Route: 048
     Dates: start: 20101215, end: 20101216
  24. TONIC WATER [Concomitant]
     Indication: MUSCLE SPASMS
     Route: 048
     Dates: start: 20100421
  25. CARBOCISTEINE [Concomitant]
     Indication: WHEEZING
     Dates: start: 20101206
  26. AMOXICILLIN AND CLAVULANATE POTASSIUM [Concomitant]
     Indication: PRODUCT USED FOR UNKNOWN INDICATION
     Route: 048
     Dates: start: 20101206

REACTIONS (1)
  - ATRIAL FIBRILLATION [None]
